FAERS Safety Report 8511933-9 (Version None)
Quarter: 2012Q3

REPORT INFORMATION
  Report Type: 
  Country: None (occurrence: None)
  Receive Date: 20120716
  Receipt Date: 20120712
  Transmission Date: 20120928
  Serious: No
  Sender: FDA-Public Use
  Company Number: US-TEVA-348191USA

PATIENT
  Sex: Female

DRUGS (1)
  1. COPAXONE [Suspect]
     Indication: MULTIPLE SCLEROSIS
     Route: 001
     Dates: start: 20120626, end: 20120711

REACTIONS (3)
  - DYSPEPSIA [None]
  - HAEMATOCHEZIA [None]
  - LETHARGY [None]
